FAERS Safety Report 8427567-0 (Version None)
Quarter: 2012Q2

REPORT INFORMATION
  Report Type: 
  Country: None (occurrence: None)
  Receive Date: 20120611
  Receipt Date: 20120531
  Transmission Date: 20120825
  Serious: Yes (Life-Threatening, Hospitalization, Disabling, Congenital Anomaly, Other)
  Sender: FDA-Public Use
  Company Number: JP-ASTRAZENECA-2012SE08018

PATIENT
  Age: 0 Day
  Sex: Male
  Weight: 4 kg

DRUGS (6)
  1. ACTOS [Concomitant]
     Route: 064
  2. AMARYL [Concomitant]
     Route: 064
  3. CANDESARTAN CILEXETIL [Suspect]
     Route: 064
  4. CONIEL [Concomitant]
     Route: 064
  5. ONON [Concomitant]
     Route: 064
  6. THEO-DUR [Concomitant]
     Route: 064

REACTIONS (5)
  - TALIPES [None]
  - CONGENITAL ABSENCE OF CRANIAL VAULT [None]
  - NEONATAL ASPHYXIA [None]
  - RENAL FAILURE NEONATAL [None]
  - PULMONARY HYPOPLASIA [None]
